FAERS Safety Report 17827614 (Version 1)
Quarter: 2020Q2

REPORT INFORMATION
  Report Type: Spontaneous
  Country: GB (occurrence: GB)
  Receive Date: 20200527
  Receipt Date: 20200527
  Transmission Date: 20200714
  Serious: Yes (Hospitalization)
  Sender: FDA-Public Use
  Company Number: GB-TEVA-2020-GB-1239430

PATIENT
  Age: 67 Year
  Sex: Male

DRUGS (14)
  1. VORICONAZOLE. [Suspect]
     Active Substance: VORICONAZOLE
     Indication: PHAEOHYPHOMYCOSIS
     Dosage: 12 MG/KG DAILY; FOR THE INITIAL TWO DOSES
     Route: 042
     Dates: start: 2014, end: 2014
  2. ALEMTUZUMAB [Suspect]
     Active Substance: ALEMTUZUMAB
     Indication: IMMUNOSUPPRESSANT DRUG THERAPY
     Route: 058
     Dates: start: 2014
  3. AMOXICILLIN. [Concomitant]
     Active Substance: AMOXICILLIN
     Indication: PHAEOHYPHOMYCOSIS
     Dosage: 3 GRAM DAILY;
     Route: 048
     Dates: start: 2014
  4. PREDNISOLONE. [Suspect]
     Active Substance: PREDNISOLONE
     Indication: IMMUNOSUPPRESSANT DRUG THERAPY
     Dosage: 20 MILLIGRAM DAILY;
     Route: 065
     Dates: start: 2014
  5. POSACONAZOLE [Suspect]
     Active Substance: POSACONAZOLE
     Indication: PHAEOHYPHOMYCOSIS
     Dosage: 600 MILLIGRAM DAILY; GASTRO-RESISTANT TABLETS; 300MG BID FOR TWO DOSES, FOLLOWED BY 300MG DAILY
     Route: 048
     Dates: start: 2014, end: 2014
  6. LIPOSOMAL AMPHOTERICIN B [Concomitant]
     Active Substance: AMPHOTERICIN B
     Indication: PHAEOHYPHOMYCOSIS
     Route: 065
     Dates: start: 2014
  7. TACROLIMUS. [Suspect]
     Active Substance: TACROLIMUS
     Indication: IMMUNOSUPPRESSANT DRUG THERAPY
     Route: 065
     Dates: start: 2014
  8. POSACONAZOLE [Suspect]
     Active Substance: POSACONAZOLE
     Dosage: 300 MILLIGRAM DAILY; DISCONTINUED AFTER EIGHT DOSES (DAY 17)
     Route: 042
     Dates: start: 2014, end: 2014
  9. FLUCYTOSINE. [Concomitant]
     Active Substance: FLUCYTOSINE
     Indication: PHAEOHYPHOMYCOSIS
     Route: 042
     Dates: start: 2014
  10. VORICONAZOLE. [Suspect]
     Active Substance: VORICONAZOLE
     Dosage: 8 MG/KG DAILY; SUBSEQUENT DOSES
     Route: 042
     Dates: start: 2014
  11. METHYLPREDNISOLONE. [Suspect]
     Active Substance: METHYLPREDNISOLONE
     Indication: IMMUNOSUPPRESSANT DRUG THERAPY
     Route: 042
     Dates: start: 2014
  12. FLUCYTOSINE. [Concomitant]
     Active Substance: FLUCYTOSINE
     Dosage: 6 GRAM DAILY;
     Route: 048
     Dates: start: 2014
  13. VORICONAZOLE. [Suspect]
     Active Substance: VORICONAZOLE
     Dosage: CEMENT SPACER CONTAINING VORICONAZOLE IN THE RIGHT DISTAL FIBULA
     Route: 042
     Dates: start: 2014
  14. POSACONAZOLE [Suspect]
     Active Substance: POSACONAZOLE
     Dosage: 300 MILLIGRAM DAILY;
     Route: 048
     Dates: start: 2014

REACTIONS (6)
  - Phaeohyphomycosis [Recovered/Resolved with Sequelae]
  - Brain abscess [Recovered/Resolved with Sequelae]
  - Enterococcal infection [Recovering/Resolving]
  - Blood alkaline phosphatase increased [Unknown]
  - Pain in extremity [Unknown]
  - Lymphopenia [Unknown]
